FAERS Safety Report 7293426-2 (Version None)
Quarter: 2011Q1

REPORT INFORMATION
  Report Type: 
  Country: None (occurrence: None)
  Receive Date: 20110215
  Receipt Date: 20110204
  Transmission Date: 20110831
  Serious: Yes (Other)
  Sender: FDA-Public Use
  Company Number: US-ELI_LILLY_AND_COMPANY-US201008007015

PATIENT
  Sex: Female

DRUGS (6)
  1. HUMULIN N [Suspect]
     Indication: DIABETES MELLITUS
     Dosage: 36 U, EACH MORNING
  2. HUMULIN N [Suspect]
     Dosage: 22 U, EACH EVENING
  3. HUMALOG [Suspect]
  4. HUMALOG [Suspect]
     Indication: DIABETES MELLITUS
     Dosage: 16 U, EACH MORNING
  5. HUMALOG [Suspect]
     Dosage: 20 U, EACH EVENING
  6. HUMALOG [Suspect]
     Dosage: UNK, AS NEEDED

REACTIONS (1)
  - CONVULSION [None]
